FAERS Safety Report 13558025 (Version 2)
Quarter: 2017Q3

REPORT INFORMATION
  Report Type: Spontaneous
  Country: US (occurrence: US)
  Receive Date: 20170518
  Receipt Date: 20170823
  Transmission Date: 20171127
  Serious: No
  Sender: FDA-Public Use
  Company Number: US-GLAXOSMITHKLINE-US2017070863

PATIENT
  Age: 42 Year
  Sex: Female

DRUGS (1)
  1. NICODERM CQ [Suspect]
     Active Substance: NICOTINE
     Indication: SMOKING CESSATION THERAPY
     Dosage: 14 MG, UNK
     Dates: end: 20170429

REACTIONS (5)
  - Application site reaction [Not Recovered/Not Resolved]
  - Application site swelling [Unknown]
  - Application site pruritus [Unknown]
  - Application site discolouration [Unknown]
  - Application site erythema [Unknown]
